FAERS Safety Report 19897925 (Version 1)
Quarter: 2021Q3

REPORT INFORMATION
  Report Type: Spontaneous
  Country: JP (occurrence: JP)
  Receive Date: 20210930
  Receipt Date: 20210930
  Transmission Date: 20211014
  Serious: Yes (Hospitalization, Other)
  Sender: FDA-Public Use
  Company Number: JP-SANIK-2021SA318744AA

PATIENT
  Age: 86 Year
  Sex: Male

DRUGS (3)
  1. WARFARIN SODIUM. [Suspect]
     Active Substance: WARFARIN SODIUM
     Indication: AORTIC BYPASS
  2. PLAVIX [Suspect]
     Active Substance: CLOPIDOGREL BISULFATE
     Indication: MYOCARDIAL INFARCTION
     Route: 048
  3. WARFARIN SODIUM. [Suspect]
     Active Substance: WARFARIN SODIUM
     Indication: MYOCARDIAL INFARCTION
     Route: 048

REACTIONS (7)
  - Biliary obstruction [Unknown]
  - Haemobilia [Recovering/Resolving]
  - Cholecystitis acute [Recovering/Resolving]
  - Inflammation [Recovering/Resolving]
  - Cholelithiasis [Unknown]
  - Hepatic enzyme increased [Unknown]
  - Gallbladder enlargement [Recovering/Resolving]
